FAERS Safety Report 5363562-6 (Version None)
Quarter: 2007Q2

REPORT INFORMATION
  Report Type: 
  Country: None (occurrence: None)
  Receive Date: 20070618
  Receipt Date: 20070618
  Transmission Date: 20071010
  Serious: Yes (Hospitalization)
  Sender: FDA-Public Use
  Company Number: None

PATIENT
  Age: 54 Year
  Sex: Female
  Weight: 66.6788 kg

DRUGS (6)
  1. CETUXIMAB [Suspect]
     Indication: BREAST CANCER METASTATIC
     Dosage: 415 MG WEEKLY IV
     Route: 042
     Dates: start: 20070306, end: 20070329
  2. CETUXIMAB [Suspect]
     Indication: BREAST CANCER METASTATIC
     Dosage: 415 MG WEEKLY IV
     Route: 042
     Dates: start: 20070404, end: 20070426
  3. CARBOPLATIN [Suspect]
     Dosage: 156 MG WEEKLY IV
     Route: 042
     Dates: start: 20070510, end: 20070517
  4. RISPERIODONE MICROSPHERE [Concomitant]
  5. VICODIN [Concomitant]
  6. MORPHINE SULFATE [Concomitant]

REACTIONS (6)
  - MASS [None]
  - MENTAL STATUS CHANGES [None]
  - METASTASES TO BONE [None]
  - METASTASES TO SPINE [None]
  - MUSCULAR WEAKNESS [None]
  - NERVOUS SYSTEM DISORDER [None]
